FAERS Safety Report 4529638-8 (Version None)
Quarter: 2004Q4

REPORT INFORMATION
  Report Type: 
  Country: None (occurrence: None)
  Receive Date: 20041216
  Receipt Date: 20041210
  Transmission Date: 20050328
  Serious: Yes (Life-Threatening, Hospitalization)
  Sender: FDA-Public Use
  Company Number: AU-MERCK-0412AUS00056

PATIENT
  Age: 45 Year
  Sex: Female

DRUGS (2)
  1. VIOXX [Suspect]
     Indication: ARTHRITIS
     Route: 048
     Dates: start: 20011201, end: 20041001
  2. LEVOTHYROXINE SODIUM [Concomitant]
     Route: 065
     Dates: start: 20031201

REACTIONS (4)
  - CARDIAC FAILURE [None]
  - CEREBRAL ISCHAEMIA [None]
  - MEMORY IMPAIRMENT [None]
  - PULMONARY OEDEMA [None]
